FAERS Safety Report 17215942 (Version 1)
Quarter: 2019Q4

REPORT INFORMATION
  Report Type: Spontaneous
  Country: GR (occurrence: GR)
  Receive Date: 20191230
  Receipt Date: 20191230
  Transmission Date: 20200122
  Serious: Yes (Other)
  Sender: FDA-Public Use
  Company Number: GR-MYLANLABS-2019M1129644

PATIENT
  Age: 85 Year
  Sex: Female

DRUGS (2)
  1. KLARICID [Suspect]
     Active Substance: CLARITHROMYCIN
     Indication: RESPIRATORY TRACT INFECTION
     Dosage: 500 MILLIGRAM, BID
     Route: 048
     Dates: start: 20191218, end: 20191221
  2. LOPRESSOR [Concomitant]
     Active Substance: METOPROLOL TARTRATE
     Dosage: UNK

REACTIONS (5)
  - Anuria [Recovered/Resolved]
  - Dementia [Unknown]
  - Prothrombin time prolonged [Not Recovered/Not Resolved]
  - Oedema [Recovering/Resolving]
  - Illusion [Not Recovered/Not Resolved]
